FAERS Safety Report 13559407 (Version 1)
Quarter: 2017Q2

REPORT INFORMATION
  Report Type: Spontaneous
  Country: US (occurrence: US)
  Receive Date: 20170518
  Receipt Date: 20170518
  Transmission Date: 20170830
  Serious: Yes (Other)
  Sender: FDA-Public Use
  Company Number: US-FRESENIUS KABI-FK201704061

PATIENT
  Age: 75 Year
  Sex: Female

DRUGS (4)
  1. LETROZOLE (MANUFACTURER UNKNOWN) [Suspect]
     Active Substance: LETROZOLE
     Indication: BREAST CANCER RECURRENT
     Route: 065
  2. LETROZOLE (MANUFACTURER UNKNOWN) [Suspect]
     Active Substance: LETROZOLE
     Indication: LYMPHADENOPATHY
  3. TAMOXIFEN (MANUFACTURER UNKNOWN) (TAMOXIFEN) (TAMOXIFEN) [Suspect]
     Active Substance: TAMOXIFEN
     Indication: OESTROGEN RECEPTOR POSITIVE BREAST CANCER
     Route: 065
  4. RALOXIFEN [Suspect]
     Active Substance: RALOXIFENE
     Indication: OESTROGEN RECEPTOR POSITIVE BREAST CANCER
     Route: 065

REACTIONS (3)
  - Aortic aneurysm [Unknown]
  - Metastases to bone [None]
  - Breast cancer recurrent [None]
